FAERS Safety Report 19895567 (Version 1)
Quarter: 2021Q3

REPORT INFORMATION
  Report Type: Spontaneous
  Country: US (occurrence: US)
  Receive Date: 20210929
  Receipt Date: 20210929
  Transmission Date: 20211014
  Serious: No
  Sender: FDA-Public Use
  Company Number: None

PATIENT
  Age: 76 Year
  Sex: Male

DRUGS (2)
  1. EPOETIN ALFA=EPPX (EPOETIN ALFA?EPBX 4000UNIT/ML, SOLN [Suspect]
     Active Substance: EPOETIN ALFA-EPBX
     Indication: ANAEMIA
     Dosage: ?          OTHER DOSE:40000;?
     Route: 058
     Dates: start: 20210630, end: 20210714
  2. DENOSUMAB (DENOSUMAB 120MG/1.7ML INJ [Suspect]
     Active Substance: DENOSUMAB
     Indication: PLASMA CELL MYELOMA
     Route: 058
     Dates: start: 20201119, end: 20210630

REACTIONS (4)
  - Rash [None]
  - Urticaria [None]
  - Pruritus [None]
  - Osteonecrosis of jaw [None]

NARRATIVE: CASE EVENT DATE: 20210730
